FAERS Safety Report 9663487 (Version 2)
Quarter: 2014Q1

REPORT INFORMATION
  Report Type: Spontaneous
  Country: US (occurrence: US)
  Receive Date: 20131101
  Receipt Date: 20140218
  Transmission Date: 20141002
  Serious: Yes (Other)
  Sender: FDA-Public Use
  Company Number: US-ASTRAZENECA-2013SE79156

PATIENT
  Age: 74 Year
  Sex: Male
  Weight: 32.7 kg

DRUGS (9)
  1. CRESTOR [Suspect]
     Indication: BLOOD CHOLESTEROL ABNORMAL
     Route: 048
     Dates: start: 2011
  2. CRESTOR [Suspect]
     Indication: BLOOD CHOLESTEROL ABNORMAL
     Route: 048
  3. COQ10 [Concomitant]
     Indication: MYALGIA
     Dosage: 3 TEASPOONS IN MORNING
     Route: 048
  4. COQ10 [Concomitant]
     Indication: ASTHENIA
     Dosage: 3 TEASPOONS IN MORNING
     Route: 048
  5. COQ10 [Concomitant]
     Indication: MYALGIA
     Dosage: 3 TEASPOONS BID
     Route: 048
     Dates: start: 201310
  6. COQ10 [Concomitant]
     Indication: ASTHENIA
     Dosage: 3 TEASPOONS BID
     Route: 048
     Dates: start: 201310
  7. CLOPIDOGREL [Concomitant]
     Indication: STENT PLACEMENT
     Route: 048
     Dates: start: 2012
  8. ASPIRIN [Concomitant]
     Route: 048
  9. STATINS/ CHOLESTEROL MEDICATIONS [Concomitant]
     Dosage: LAST 10-15 YEARS

REACTIONS (7)
  - Myocardial infarction [Recovered/Resolved]
  - Pain [Recovering/Resolving]
  - Limb discomfort [Recovering/Resolving]
  - Asthenia [Recovering/Resolving]
  - Blood cholesterol increased [Not Recovered/Not Resolved]
  - Low density lipoprotein increased [Not Recovered/Not Resolved]
  - Myalgia [Not Recovered/Not Resolved]
